FAERS Safety Report 20247707 (Version 1)
Quarter: 2021Q4

REPORT INFORMATION
  Report Type: Spontaneous
  Country: US (occurrence: None)
  Receive Date: 20211228
  Receipt Date: 20211228
  Transmission Date: 20220303
  Serious: Yes (Hospitalization)
  Sender: FDA-Public Use
  Company Number: None

PATIENT
  Sex: Female

DRUGS (8)
  1. AMLODIPINE [Suspect]
     Active Substance: AMLODIPINE BESYLATE
     Indication: Liver transplant
  2. FEXOFENADINE [Concomitant]
  3. PAXIL [Concomitant]
  4. RANITIDINE [Concomitant]
  5. SINGULAR [Concomitant]
  6. TACROLIMUS [Concomitant]
  7. TRAZODONE [Concomitant]
  8. ZYRTEC [Concomitant]

REACTIONS (1)
  - Hospitalisation [None]
